FAERS Safety Report 6979920-X (Version None)
Quarter: 2010Q3

REPORT INFORMATION
  Report Type: 
  Country: None (occurrence: None)
  Receive Date: 20100914
  Receipt Date: 20100903
  Transmission Date: 20110219
  Serious: Yes (Hospitalization)
  Sender: FDA-Public Use
  Company Number: US-US-EMD SERONO, INC.-231647J10USA

PATIENT
  Sex: Female
  Weight: 111 kg

DRUGS (8)
  1. REBIF [Suspect]
     Indication: MULTIPLE SCLEROSIS
     Route: 058
     Dates: start: 20020101, end: 20100301
  2. REBIF [Suspect]
     Route: 058
     Dates: start: 20100101
  3. LITHIUM CARBONATE [Concomitant]
     Indication: BIPOLAR DISORDER
     Dates: end: 20060101
  4. COGENTIN [Concomitant]
  5. KLONOPIN [Concomitant]
  6. ATIVAN [Concomitant]
     Indication: ANXIETY
  7. DEPAKOTE [Concomitant]
  8. ZIPRASIDONE HCL [Concomitant]
     Indication: BIPOLAR DISORDER

REACTIONS (5)
  - CARDIAC FAILURE CONGESTIVE [None]
  - CONVULSION [None]
  - MULTIPLE SCLEROSIS RELAPSE [None]
  - PNEUMONIA [None]
  - RENAL FAILURE [None]
